FAERS Safety Report 7892389-6 (Version None)
Quarter: 2011Q4

REPORT INFORMATION
  Report Type: 
  Country: None (occurrence: None)
  Receive Date: 20111101
  Receipt Date: 20111021
  Transmission Date: 20120403
  Serious: Yes (Hospitalization, Disabling)
  Sender: FDA-Public Use
  Company Number: 1084912

PATIENT
  Age: 71 Year
  Sex: Female

DRUGS (4)
  1. (VITAMIN D /00107901/)   (CALCIUM) [Concomitant]
  2. DEXAMETHASONE [Concomitant]
     Indication: DECREASED APPETITE
  3. OXALIPLATIN [Suspect]
     Indication: COLON CANCER
  4. CAPECITABINE [Suspect]
     Indication: COLON CANCER

REACTIONS (7)
  - FATIGUE [None]
  - ACTIVITIES OF DAILY LIVING IMPAIRED [None]
  - DECREASED APPETITE [None]
  - NEGATIVE THOUGHTS [None]
  - SPINAL FRACTURE [None]
  - QUALITY OF LIFE DECREASED [None]
  - DYSSTASIA [None]
